FAERS Safety Report 21605790 (Version 1)
Quarter: 2022Q4

REPORT INFORMATION
  Report Type: Spontaneous
  Country: US (occurrence: None)
  Receive Date: 20221116
  Receipt Date: 20221116
  Transmission Date: 20230112
  Serious: Yes (Hospitalization)
  Sender: FDA-Public Use
  Company Number: None

PATIENT
  Age: 74 Year
  Sex: Male
  Weight: 96.9 kg

DRUGS (3)
  1. DARATUMUMAB\HYALURONIDASE-FIHJ [Suspect]
     Active Substance: DARATUMUMAB\HYALURONIDASE-FIHJ
     Dates: end: 20221020
  2. DEXAMETHASONE [Suspect]
     Active Substance: DEXAMETHASONE
     Dates: end: 20221110
  3. LENALIDOMIDE [Suspect]
     Active Substance: LENALIDOMIDE
     Dates: end: 20221110

REACTIONS (5)
  - Pyrexia [None]
  - Chills [None]
  - Malaise [None]
  - Fatigue [None]
  - Sepsis [None]

NARRATIVE: CASE EVENT DATE: 20221111
